FAERS Safety Report 6756873-0 (Version None)
Quarter: 2010Q2

REPORT INFORMATION
  Report Type: 
  Country: None (occurrence: None)
  Receive Date: 20100524
  Receipt Date: 20100215
  Transmission Date: 20101027
  Serious: No
  Sender: FDA-Public Use
  Company Number: 006963

PATIENT
  Sex: Female
  Weight: 142 kg

DRUGS (5)
  1. CIMZIA [Suspect]
     Indication: RHEUMATOID ARTHRITIS
     Dosage: (400 MG SUBCUTANEOUS0
     Route: 058
     Dates: start: 20100108
  2. SULFAMETHOXAZOLE [Concomitant]
  3. NEXIUM [Concomitant]
  4. SINGULAIR [Concomitant]
  5. XOPENEX [Concomitant]

REACTIONS (2)
  - AMENORRHOEA [None]
  - BLOOD TEST ABNORMAL [None]
